FAERS Safety Report 22104892 (Version 1)
Quarter: 2023Q1

REPORT INFORMATION
  Report Type: Spontaneous
  Country: US (occurrence: US)
  Receive Date: 20230316
  Receipt Date: 20230316
  Transmission Date: 20230417
  Serious: No
  Sender: FDA-Public Use
  Company Number: US-SCYNEXIS, INC.-2023SCY000013

PATIENT

DRUGS (2)
  1. BREXAFEMME [Suspect]
     Active Substance: IBREXAFUNGERP CITRATE
     Indication: Vaginal infection
     Dosage: UNK
     Route: 048
  2. BREXAFEMME [Suspect]
     Active Substance: IBREXAFUNGERP CITRATE
     Indication: Infection prophylaxis

REACTIONS (1)
  - Infection [Unknown]
